FAERS Safety Report 4623344-7 (Version None)
Quarter: 2005Q1

REPORT INFORMATION
  Report Type: 
  Country: None (occurrence: None)
  Receive Date: 20050325
  Receipt Date: 20050308
  Transmission Date: 20050727
  Serious: Yes (Other)
  Sender: FDA-Public Use
  Company Number: 200510416BBE

PATIENT
  Sex: Male

DRUGS (10)
  1. KOATE [Suspect]
     Indication: HAEMOPHILIA
  2. KONYNE [Suspect]
     Indication: HAEMOPHILIA
  3. ANTIHEMOPHILIC FACTOR (HUMAN) [Suspect]
     Indication: HAEMOPHILIA
  4. FACTOR IX COMPLEX [Suspect]
     Indication: HAEMOPHILIA
  5. ANTIHEMOPHILIC FACTOR (HUMAN) [Suspect]
     Indication: HAEMOPHILIA
  6. FACTOR IX COMPLEX [Suspect]
     Indication: HAEMOPHILIA
  7. ANTIHEMOPHILIC FACTOR (HUMAN) [Suspect]
     Indication: HAEMOPHILIA
  8. FACTOR IX COMPLEX [Suspect]
     Indication: HAEMOPHILIA
  9. ANTIHEMOPHILIC FACTOR (HUMAN) [Suspect]
     Indication: HAEMOPHILIA
  10. FACTOR IX COMPLEX [Suspect]
     Indication: HAEMOPHILIA

REACTIONS (2)
  - ADVERSE EVENT [None]
  - PHARMACEUTICAL PRODUCT COMPLAINT [None]
